FAERS Safety Report 19628060 (Version 1)
Quarter: 2021Q3

REPORT INFORMATION
  Report Type: Other
  Country: GB (occurrence: GB)
  Receive Date: 20210729
  Receipt Date: 20210729
  Transmission Date: 20211014
  Serious: Yes (Other)
  Sender: FDA-Public Use
  Company Number: GB-GLENMARK PHARMACEUTICALS-2021GMK066890

PATIENT

DRUGS (13)
  1. FEXOFENADINE [Concomitant]
     Active Substance: FEXOFENADINE HYDROCHLORIDE
     Indication: ILL-DEFINED DISORDER
     Dosage: 1 DOSAGE FORM, QD (TAKE ONE DAILY)
     Route: 065
     Dates: start: 20201116
  2. NORTRIPTYLINE [Concomitant]
     Active Substance: NORTRIPTYLINE
     Indication: ILL-DEFINED DISORDER
     Dosage: 1 DOSAGE FORM, HS
     Route: 065
     Dates: start: 20201116, end: 20210514
  3. ATORVASTATIN [Concomitant]
     Active Substance: ATORVASTATIN
     Indication: ILL-DEFINED DISORDER
     Dosage: 1 DOSAGE FORM, QD (ONE TO BE TAKEN EACH DAY)
     Route: 065
     Dates: start: 20201116, end: 20210512
  4. DESOGESTREL [Concomitant]
     Active Substance: DESOGESTREL
     Indication: ILL-DEFINED DISORDER
     Dosage: 1 DOSAGE FORM, QD (ONE TABLET DAILY AT THE SAME TIME EACH DAY)
     Route: 065
     Dates: start: 20201116
  5. PROCTOSEDYL [CINCHOCAINE HYDROCHLORIDE;ESCULOSIDE;FRAMYCETIN SULFATE;H [Concomitant]
     Indication: ILL-DEFINED DISORDER
     Dosage: 1 DOSAGE FORM, BID (APPLY EACH MORNING AND NIGHT AND AFTER A BOWEL ...)
     Route: 065
     Dates: start: 20201116
  6. CLENIL MODULITE [Concomitant]
     Active Substance: BECLOMETHASONE DIPROPIONATE
     Indication: ILL-DEFINED DISORDER
     Dosage: 2 DOSAGE FORM, BID (INHALE 2 DOSES TWICE DAILY)
     Dates: start: 20201116
  7. CO?MAGALDROX [Concomitant]
     Indication: ILL-DEFINED DISORDER
     Dosage: 5 MILLILITER (2X5ML SPOON AS NEEDED)
     Route: 065
     Dates: start: 20201116
  8. GABAPENTIN. [Concomitant]
     Active Substance: GABAPENTIN
     Indication: ILL-DEFINED DISORDER
     Dosage: 1 DOSAGE FORM, TID (TAKE ONE UP TO THREE TIMES DAILY)
     Route: 065
     Dates: start: 20201124
  9. HYOSCINE BUTYLBROMIDE [Concomitant]
     Active Substance: BUTYLSCOPOLAMINE BROMIDE
     Indication: ILL-DEFINED DISORDER
     Dosage: 1 DOSAGE FORM (ONE TO BE TAKEN THREE OR FOUR TIMES A DAY)
     Route: 065
     Dates: start: 20201116
  10. ROSUVASTATIN. [Concomitant]
     Active Substance: ROSUVASTATIN
     Indication: ILL-DEFINED DISORDER
     Dosage: 1 DOSAGE FORM, QD (TAKE ONE DAILY)
     Route: 065
     Dates: start: 20210629, end: 20210720
  11. MIRTAZAPINE. [Concomitant]
     Active Substance: MIRTAZAPINE
     Indication: ILL-DEFINED DISORDER
     Dosage: 1 DOSAGE FORM, HS
     Route: 065
     Dates: start: 20210514
  12. ROSUVASTATIN CALCIUM. [Suspect]
     Active Substance: ROSUVASTATIN CALCIUM
     Indication: ILL-DEFINED DISORDER
     Dosage: UNK
     Route: 065
     Dates: start: 20210720
  13. CLOPIDOGREL [Concomitant]
     Active Substance: CLOPIDOGREL BISULFATE
     Indication: ILL-DEFINED DISORDER
     Dosage: 1 DOSAGE FORM, QD (ONE TO BE TAKEN EACH DAY)
     Route: 065
     Dates: start: 20201116

REACTIONS (1)
  - Essential tremor [Unknown]

NARRATIVE: CASE EVENT DATE: 20210720
